FAERS Safety Report 7015881-5 (Version None)
Quarter: 2010Q3

REPORT INFORMATION
  Report Type: 
  Country: None (occurrence: None)
  Receive Date: 20100927
  Receipt Date: 20100106
  Transmission Date: 20110219
  Serious: No
  Sender: FDA-Public Use
  Company Number: US-ASTRAZENECA-2009SE33194

PATIENT
  Age: 67 Year
  Sex: Female
  Weight: 75.4 kg

DRUGS (11)
  1. ARIMIDEX [Suspect]
     Indication: BREAST CANCER
     Route: 048
     Dates: start: 20081215
  2. FLECTOR [Concomitant]
  3. SEREVENT [Concomitant]
  4. LIPITOR [Concomitant]
  5. ADVIL LIQUI-GELS [Concomitant]
  6. LORAZEPAM [Concomitant]
  7. FLOVENTIN [Concomitant]
  8. METAMUCIL-2 [Concomitant]
  9. ASPIRIN [Concomitant]
  10. OS-CAL [Concomitant]
  11. CENTRUM SILVER [Concomitant]

REACTIONS (2)
  - DIAPHRAGMATIC DISORDER [None]
  - SPEECH DISORDER [None]
